FAERS Safety Report 8018149-3 (Version None)
Quarter: 2011Q4

REPORT INFORMATION
  Report Type: 
  Country: None (occurrence: None)
  Receive Date: 20111228
  Receipt Date: 20111215
  Transmission Date: 20120403
  Serious: Yes (Hospitalization)
  Sender: FDA-Public Use
  Company Number: 1000026470

PATIENT
  Age: 81 Year
  Sex: Female

DRUGS (6)
  1. PROSPAN (LEVAMISOLE HYDROCHLORIDE, IVY) (SYRUP) (LEVAMISOLE HYDROCHLOR [Concomitant]
  2. MEMANTINE HYDROCHLORIDE [Suspect]
     Dosage: DAILY DOSE INCREASED NOS
     Dates: start: 20110901, end: 20110901
  3. EXELON (RIVASTIGMINE) (POULTICE OR PATCH) (RIVASTIGMINE) [Concomitant]
  4. MEMANTINE HYDROCHLORIDE [Suspect]
     Dates: start: 20110401, end: 20110901
  5. TANAKAN (GINKGO BILOBA EXTRACT) (GINKGO BILOBA EXTRACT) [Concomitant]
  6. PIASCLEDINE (AVOCADO, SOY OIL) (AVOCADO, SOY OIL) [Concomitant]

REACTIONS (9)
  - MALAISE [None]
  - VOMITING [None]
  - FALL [None]
  - EPILEPSY [None]
  - APHASIA [None]
  - AGITATION [None]
  - INCOHERENT [None]
  - CONFUSIONAL STATE [None]
  - HYPERTONIA [None]
